FAERS Safety Report 5609457-1 (Version None)
Quarter: 2008Q1

REPORT INFORMATION
  Report Type: 
  Country: None (occurrence: None)
  Receive Date: 20080131
  Receipt Date: 20080118
  Transmission Date: 20080703
  Serious: Yes (Hospitalization)
  Sender: FDA-Public Use
  Company Number: IN-AMGEN-UK261443

PATIENT
  Sex: Female

DRUGS (2)
  1. NEULASTIM [Suspect]
     Indication: CHEMOTHERAPY
     Route: 058
  2. CYTARABINE [Concomitant]
     Route: 065
     Dates: start: 20080108, end: 20080112

REACTIONS (1)
  - FEBRILE NEUTROPENIA [None]
